FAERS Safety Report 8303890-5 (Version None)
Quarter: 2012Q2

REPORT INFORMATION
  Report Type: 
  Country: None (occurrence: None)
  Receive Date: 20120423
  Receipt Date: 20120417
  Transmission Date: 20120825
  Serious: Yes (Other)
  Sender: FDA-Public Use
  Company Number: PHEH2012US008228

PATIENT
  Sex: Male

DRUGS (4)
  1. METHYLPHENIDATE HCL [Suspect]
     Dosage: 10 MG, UNK
  2. CONCERTA [Concomitant]
     Dosage: UNK
  3. ADDERALL 5 [Concomitant]
  4. VYVANSE [Concomitant]

REACTIONS (4)
  - SUICIDAL IDEATION [None]
  - ABNORMAL DREAMS [None]
  - HOMICIDAL IDEATION [None]
  - HALLUCINATION, AUDITORY [None]
